FAERS Safety Report 5328038-0 (Version None)
Quarter: 2007Q2

REPORT INFORMATION
  Report Type: 
  Country: None (occurrence: None)
  Receive Date: 20070514
  Receipt Date: 20070507
  Transmission Date: 20071010
  Serious: Yes (Hospitalization)
  Sender: FDA-Public Use
  Company Number: 2007AL001823

PATIENT
  Sex: Female

DRUGS (1)
  1. NIFEDIPINE CAPSULES USP, 10 MG (PEG-INTRON FORMULATION)(PUREPAC) [Suspect]
     Indication: HYPERTENSION
     Dosage: 10 MG;X1
     Dates: start: 20070503, end: 20070503

REACTIONS (7)
  - BLOOD PRESSURE INCREASED [None]
  - CHEST PAIN [None]
  - CONFUSIONAL STATE [None]
  - CONVULSION [None]
  - DIZZINESS [None]
  - HEADACHE [None]
  - HYPERSENSITIVITY [None]
